FAERS Safety Report 18956913 (Version 1)
Quarter: 2021Q1

REPORT INFORMATION
  Report Type: Spontaneous
  Country: US (occurrence: US)
  Receive Date: 20210302
  Receipt Date: 20210302
  Transmission Date: 20210420
  Serious: No
  Sender: FDA-Public Use
  Company Number: NVSC2021US041039

PATIENT
  Sex: Female

DRUGS (1)
  1. XIIDRA [Suspect]
     Active Substance: LIFITEGRAST
     Indication: PRODUCT USED FOR UNKNOWN INDICATION
     Dosage: 2 DRP, QD (2X A DAY, EACH EYE)
     Route: 047

REACTIONS (6)
  - Eye pruritus [Unknown]
  - Eye pain [Unknown]
  - Accidental exposure to product [Unknown]
  - Eye swelling [Unknown]
  - Product container issue [Unknown]
  - Product use complaint [Unknown]
